FAERS Safety Report 5569474-7 (Version None)
Quarter: 2007Q4

REPORT INFORMATION
  Report Type: 
  Country: None (occurrence: None)
  Receive Date: 20071220
  Receipt Date: 20071210
  Transmission Date: 20080405
  Serious: Yes (Other)
  Sender: FDA-Public Use
  Company Number: US-SANOFI-SYNTHELABO-A03200706860

PATIENT
  Sex: Male

DRUGS (6)
  1. ASACOL [Concomitant]
     Indication: COLITIS ULCERATIVE
     Dosage: UNK
     Route: 065
  2. PLENDIL [Concomitant]
     Indication: DRUG USE FOR UNKNOWN INDICATION
     Route: 065
  3. PRAVASTATIN [Concomitant]
     Indication: DRUG USE FOR UNKNOWN INDICATION
     Route: 065
  4. DIOVAN [Concomitant]
     Indication: DRUG USE FOR UNKNOWN INDICATION
     Route: 065
  5. LEXAPRO [Interacting]
     Indication: DRUG USE FOR UNKNOWN INDICATION
     Dosage: UNK
     Route: 048
     Dates: start: 20071117, end: 20071120
  6. AMBIEN CR [Suspect]
     Indication: INSOMNIA
     Route: 048
     Dates: start: 20071101, end: 20071120

REACTIONS (4)
  - AMNESIA [None]
  - DRUG EFFECT DECREASED [None]
  - ROAD TRAFFIC ACCIDENT [None]
  - SOMNAMBULISM [None]
